FAERS Safety Report 20682287 (Version 8)
Quarter: 2023Q1

REPORT INFORMATION
  Report Type: Report from Study
  Country: MX (occurrence: MX)
  Receive Date: 20220407
  Receipt Date: 20230216
  Transmission Date: 20230417
  Serious: Yes (Other)
  Sender: FDA-Public Use
  Company Number: MX-NOVARTISPH-NVSC2022MX077978

PATIENT
  Age: 61 Year
  Sex: Female

DRUGS (4)
  1. TASIGNA [Suspect]
     Active Substance: NILOTINIB
     Indication: Chronic myeloid leukaemia
     Dosage: UNK
     Route: 048
  2. TASIGNA [Suspect]
     Active Substance: NILOTINIB
     Dosage: 2 UNK
     Route: 048
  3. TASIGNA [Suspect]
     Active Substance: NILOTINIB
     Dosage: 4 UNK
     Route: 048
  4. TASIGNA [Suspect]
     Active Substance: NILOTINIB
     Dosage: UNK
     Route: 048

REACTIONS (32)
  - Blood glucose abnormal [Not Recovered/Not Resolved]
  - Retinal detachment [Unknown]
  - Blindness [Unknown]
  - Diabetes mellitus [Unknown]
  - Blood glucose decreased [Unknown]
  - Dysstasia [Unknown]
  - General physical health deterioration [Unknown]
  - Visual impairment [Unknown]
  - Insomnia [Unknown]
  - Eyelid disorder [Unknown]
  - Panic attack [Unknown]
  - Weight abnormal [Not Recovered/Not Resolved]
  - Fear [Not Recovered/Not Resolved]
  - Hunger [Unknown]
  - Blood pressure increased [Not Recovered/Not Resolved]
  - Cholelithiasis [Unknown]
  - Biliary colic [Unknown]
  - Munchausen^s syndrome [Unknown]
  - Stress [Unknown]
  - Sleep terror [Unknown]
  - Abnormal dreams [Unknown]
  - Anger [Unknown]
  - Memory impairment [Unknown]
  - Somnolence [Unknown]
  - Feeling abnormal [Unknown]
  - Headache [Unknown]
  - Decreased appetite [Unknown]
  - Malaise [Unknown]
  - Anxiety [Unknown]
  - Fatigue [Unknown]
  - Depression [Unknown]
  - Vomiting [Unknown]
